FAERS Safety Report 9706275 (Version 3)
Quarter: 2014Q1

REPORT INFORMATION
  Report Type: Report from Study
  Country: US (occurrence: US)
  Receive Date: 20131125
  Receipt Date: 20140114
  Transmission Date: 20141002
  Serious: Yes (Death, Life-Threatening, Hospitalization)
  Sender: FDA-Public Use
  Company Number: US-BIOGENIDEC-2013BI111162

PATIENT
  Age: 28 Year
  Sex: Female
  Weight: 55 kg

DRUGS (9)
  1. TYSABRI [Suspect]
     Indication: RELAPSING-REMITTING MULTIPLE SCLEROSIS
     Route: 042
     Dates: start: 20130809, end: 20130809
  2. LEXAPRO [Concomitant]
     Indication: DEPRESSION
     Route: 048
     Dates: start: 20130308
  3. VITAMIN D3 [Concomitant]
     Indication: VITAMIN D DECREASED
     Route: 060
     Dates: start: 20130408
  4. COENZYME Q10 [Concomitant]
     Indication: COGNITIVE DISORDER
     Route: 048
     Dates: start: 20130408
  5. COENZYME Q10 [Concomitant]
     Indication: ROUTINE HEALTH MAINTENANCE
     Route: 048
     Dates: start: 20130408
  6. MAGNESIUM [Concomitant]
     Indication: MUSCLE RELAXANT THERAPY
     Route: 048
     Dates: start: 20130408
  7. NUVIGIL [Concomitant]
     Indication: FATIGUE
     Route: 048
     Dates: start: 20130501
  8. FLEXERIL [Concomitant]
     Indication: MUSCLE RELAXANT THERAPY
     Route: 048
     Dates: start: 20130921
  9. NEURONTIN [Concomitant]
     Indication: PAIN
     Route: 048
     Dates: start: 20130924

REACTIONS (1)
  - Subdural haematoma [Fatal]
